FAERS Safety Report 21301767 (Version 2)
Quarter: 2022Q3

REPORT INFORMATION
  Report Type: Spontaneous
  Country: PL (occurrence: PL)
  Receive Date: 20220907
  Receipt Date: 20220919
  Transmission Date: 20221027
  Serious: Yes (Other)
  Sender: FDA-Public Use
  Company Number: PL-TEVA-2022-PL-2070329

PATIENT
  Age: 8 Year
  Sex: Female

DRUGS (6)
  1. METHOTREXATE [Suspect]
     Active Substance: METHOTREXATE
     Indication: Inflammatory myofibroblastic tumour
     Route: 042
     Dates: start: 2018
  2. VINBLASTINE [Suspect]
     Active Substance: VINBLASTINE
     Indication: Inflammatory myofibroblastic tumour
     Route: 042
     Dates: start: 2018
  3. CRIZOTINIB [Concomitant]
     Active Substance: CRIZOTINIB
     Indication: Inflammatory myofibroblastic tumour
     Dosage: 200 MILLIGRAM DAILY;
     Route: 048
     Dates: start: 201901
  4. CRIZOTINIB [Concomitant]
     Active Substance: CRIZOTINIB
     Dosage: 400 MILLIGRAM DAILY;
     Route: 048
  5. CLARITHROMYCIN [Concomitant]
     Active Substance: CLARITHROMYCIN
     Indication: Inflammatory myofibroblastic tumour
     Dosage: 500 MILLIGRAM DAILY; 2 X 250MG/DAY
     Route: 048
     Dates: start: 2018
  6. ETORICOXIB [Concomitant]
     Active Substance: ETORICOXIB
     Indication: Inflammatory myofibroblastic tumour
     Dosage: 30 MILLIGRAM DAILY;
     Route: 048
     Dates: start: 2018

REACTIONS (2)
  - Hepatotoxicity [Unknown]
  - Hypertransaminasaemia [Unknown]

NARRATIVE: CASE EVENT DATE: 20180101
